FAERS Safety Report 9439117 (Version 1)
Quarter: 2013Q3

REPORT INFORMATION
  Report Type: Report from Study
  Country: US (occurrence: US)
  Receive Date: 20130802
  Receipt Date: 20130802
  Transmission Date: 20140515
  Serious: Yes (Other)
  Sender: FDA-Public Use
  Company Number: US-ABBOTT-13P-163-1125559-00

PATIENT
  Sex: Female

DRUGS (4)
  1. HUMIRA [Suspect]
     Indication: PSORIASIS
     Dates: start: 2006
  2. HUMIRA [Suspect]
     Dates: start: 2011
  3. ALLERGY MEDICATION [Concomitant]
     Indication: PRODUCT USED FOR UNKNOWN INDICATION
  4. UNKNOWN PSORIASIS CREAM [Concomitant]

REACTIONS (6)
  - Meniscus injury [Recovered/Resolved]
  - Nerve injury [Recovered/Resolved]
  - Drug ineffective [Unknown]
  - Dermatitis contact [Unknown]
  - Psoriasis [Unknown]
  - Herpes virus infection [Unknown]
